FAERS Safety Report 7687394-9 (Version None)
Quarter: 2011Q3

REPORT INFORMATION
  Report Type: 
  Country: None (occurrence: None)
  Receive Date: 20110816
  Receipt Date: 20110816
  Transmission Date: 20111222
  Serious: Yes (Hospitalization, Other)
  Sender: FDA-Public Use
  Company Number: CA-ABBOTT-11P-028-0845765-00

PATIENT
  Sex: Female
  Weight: 50.394 kg

DRUGS (2)
  1. LOMOTIL [Concomitant]
     Indication: CROHN'S DISEASE
     Route: 048
     Dates: start: 20040101
  2. HUMIRA [Suspect]
     Indication: CROHN'S DISEASE
     Route: 058
     Dates: start: 20080430, end: 20110601

REACTIONS (6)
  - GASTROINTESTINAL MOTILITY DISORDER [None]
  - PROCEDURAL PAIN [None]
  - INTESTINAL OBSTRUCTION [None]
  - WEIGHT DECREASED [None]
  - ANXIETY [None]
  - GASTROINTESTINAL INFECTION [None]
